FAERS Safety Report 6535327-0 (Version None)
Quarter: 2010Q1

REPORT INFORMATION
  Report Type: 
  Country: None (occurrence: None)
  Receive Date: 20100111
  Receipt Date: 20100111
  Transmission Date: 20100710
  Serious: No
  Sender: FDA-Public Use
  Company Number: None

PATIENT
  Age: 51 Year
  Sex: Female
  Weight: 63.5036 kg

DRUGS (1)
  1. ZICAM EXTREME CONGESTION [Suspect]
     Indication: NASOPHARYNGITIS
     Dosage: ONE SPRAY IN EACH NOSTRIL
     Dates: start: 20091230, end: 20100101

REACTIONS (4)
  - AGEUSIA [None]
  - ANOSMIA [None]
  - POOR QUALITY DRUG ADMINISTERED [None]
  - PRODUCT QUALITY ISSUE [None]
